FAERS Safety Report 4954264-6 (Version None)
Quarter: 2006Q1

REPORT INFORMATION
  Report Type: 
  Country: None (occurrence: None)
  Receive Date: 20060327
  Receipt Date: 20050824
  Transmission Date: 20060701
  Serious: Yes (Hospitalization, Disabling, Other)
  Sender: FDA-Public Use
  Company Number: US-MERCK-0508USA04073

PATIENT
  Age: 65 Year
  Sex: Male
  Weight: 82 kg

DRUGS (2)
  1. VIOXX [Suspect]
     Indication: ARTHRITIS
     Route: 048
     Dates: start: 20000901, end: 20040901
  2. NEURONTIN [Concomitant]
     Route: 048

REACTIONS (21)
  - AMAUROSIS FUGAX [None]
  - AMNESIA [None]
  - CAROTID ARTERIAL EMBOLUS [None]
  - CAROTID ARTERY OCCLUSION [None]
  - CEREBROVASCULAR ACCIDENT [None]
  - CHEST PAIN [None]
  - DEPRESSION [None]
  - EYE DISORDER [None]
  - GASTRITIS [None]
  - GASTROINTESTINAL HAEMORRHAGE [None]
  - HERNIA [None]
  - HIATUS HERNIA [None]
  - INGUINAL HERNIA REPAIR [None]
  - IRON DEFICIENCY ANAEMIA [None]
  - OPTIC ISCHAEMIC NEUROPATHY [None]
  - PROSTATIC DISORDER [None]
  - RESTLESS LEGS SYNDROME [None]
  - SLEEP APNOEA SYNDROME [None]
  - THROMBOSIS [None]
  - TRIGGER FINGER [None]
  - URINARY RETENTION [None]
